FAERS Safety Report 11825100 (Version 3)
Quarter: 2016Q3

REPORT INFORMATION
  Report Type: Spontaneous
  Country: IT (occurrence: IT)
  Receive Date: 20151211
  Receipt Date: 20160723
  Transmission Date: 20161109
  Serious: Yes (Hospitalization, Other)
  Sender: FDA-Public Use
  Company Number: IT-009507513-1512ITA004031

PATIENT
  Age: 57 Year
  Sex: Female

DRUGS (5)
  1. RIVOTRIL [Suspect]
     Active Substance: CLONAZEPAM
     Indication: DEPRESSION
     Dosage: STRENGHT 2.5 MG/ML, 15 DROPS, QD
     Route: 048
     Dates: start: 20151122
  2. NOZINAN [Suspect]
     Active Substance: LEVOMEPROMAZINE
     Indication: PANIC ATTACK
     Dosage: 25 MG, QD
     Route: 048
     Dates: start: 201411
  3. CARBOLITIUM [Suspect]
     Active Substance: LITHIUM CARBONATE
     Indication: PANIC ATTACK
     Dosage: 600 MG, QD
     Route: 048
     Dates: start: 201411
  4. LAROXYL [Suspect]
     Active Substance: AMITRIPTYLINE
     Indication: DEPRESSION
     Dosage: 25 MG, QD
     Route: 048
     Dates: start: 201411
  5. TRILAFON [Suspect]
     Active Substance: PERPHENAZINE
     Indication: PANIC ATTACK
     Dosage: 8 MG, QD
     Route: 048
     Dates: start: 201411

REACTIONS (5)
  - Pyrexia [Recovered/Resolved]
  - Confusional state [Recovered/Resolved]
  - Abdominal pain [Recovered/Resolved]
  - Abdominal distension [Recovered/Resolved]
  - Mental impairment [Recovered/Resolved]

NARRATIVE: CASE EVENT DATE: 20151123
